FAERS Safety Report 12808903 (Version 3)
Quarter: 2016Q4

REPORT INFORMATION
  Report Type: Spontaneous
  Country: NL (occurrence: NL)
  Receive Date: 20161004
  Receipt Date: 20161026
  Transmission Date: 20170207
  Serious: Yes (Other)
  Sender: FDA-Public Use
  Company Number: NL-SA-2016SA175207

PATIENT
  Age: 9 Year
  Sex: Male
  Weight: 21 kg

DRUGS (7)
  1. RIFADIN [Suspect]
     Active Substance: RIFAMPIN
     Indication: PRURITUS
     Dosage: DOSE=2DD1
     Route: 048
     Dates: start: 20110627, end: 20160302
  2. VITAMIN D [Concomitant]
     Active Substance: CHOLECALCIFEROL
     Route: 048
  3. TOCOPHEROL [Concomitant]
     Active Substance: TOCOPHEROL
  4. SODIUM PHENYLBUTYRATE. [Concomitant]
     Active Substance: SODIUM PHENYLBUTYRATE
     Route: 048
  5. RIFADIN [Suspect]
     Active Substance: RIFAMPIN
     Indication: PRURITUS
     Route: 048
     Dates: end: 20110627
  6. RIFADIN [Suspect]
     Active Substance: RIFAMPIN
     Indication: PRURITUS
     Dosage: DOSE=DOSE=2DD100MG
     Route: 065
     Dates: start: 20160302
  7. PHYTOMENADIONE [Concomitant]
     Active Substance: PHYTONADIONE
     Route: 048

REACTIONS (2)
  - Cataract [Not Recovered/Not Resolved]
  - Product use issue [Unknown]

NARRATIVE: CASE EVENT DATE: 20160824
